FAERS Safety Report 9522447 (Version 4)
Quarter: 2013Q4

REPORT INFORMATION
  Report Type: Spontaneous
  Country: US (occurrence: US)
  Receive Date: 20130913
  Receipt Date: 20131108
  Transmission Date: 20140711
  Serious: Yes (Hospitalization, Disabling, Other)
  Sender: FDA-Public Use
  Company Number: US-009507513-1309USA002245

PATIENT
  Sex: Female
  Weight: 77.98 kg

DRUGS (11)
  1. FOSAMAX [Suspect]
     Indication: OSTEOPOROSIS
     Dosage: 70 MG, QW
     Route: 048
     Dates: start: 20010703
  2. FOSAMAX [Suspect]
     Indication: OSTEOPENIA
  3. ALENDRONATE SODIUM [Suspect]
     Indication: OSTEOPOROSIS
     Dosage: 70 MG, QW
     Route: 048
     Dates: start: 20080417, end: 20111217
  4. ALENDRONATE SODIUM [Suspect]
     Indication: OSTEOPENIA
  5. VITAMINS (UNSPECIFIED) [Concomitant]
     Dosage: UNK
     Dates: start: 1997
  6. VAGIFEM [Concomitant]
     Indication: HOT FLUSH
     Dosage: 10 MICROGRAM, BIW
     Route: 067
     Dates: start: 20010514, end: 20100719
  7. VAGIFEM [Concomitant]
     Indication: MENOPAUSAL SYMPTOMS
  8. PROGRAF [Concomitant]
     Indication: PROPHYLAXIS AGAINST TRANSPLANT REJECTION
     Dosage: 5 MG, TID
     Dates: start: 20000122
  9. SULFAMETHOXAZOLE (+) TRIMETHOPRIM [Concomitant]
     Indication: PROPHYLAXIS AGAINST TRANSPLANT REJECTION
     Dosage: UNK
     Dates: start: 20000504, end: 20081119
  10. CELLCEPT [Concomitant]
     Indication: PROPHYLAXIS AGAINST TRANSPLANT REJECTION
     Dosage: 250 MG, UNK
     Dates: start: 20041110, end: 20120629
  11. TACROLIMUS [Concomitant]
     Indication: PROPHYLAXIS AGAINST TRANSPLANT REJECTION
     Dosage: UNK
     Dates: start: 20111024, end: 20120629

REACTIONS (22)
  - Femur fracture [Unknown]
  - Intramedullary rod insertion [Unknown]
  - Renal failure chronic [Not Recovered/Not Resolved]
  - Hip arthroplasty [Unknown]
  - Haemorrhagic anaemia [Unknown]
  - Klebsiella infection [Unknown]
  - Low turnover osteopathy [Unknown]
  - Anxiety [Unknown]
  - Cholelithiasis [Unknown]
  - Hypertension [Unknown]
  - Vaginal infection [Unknown]
  - Haemorrhoids [Unknown]
  - Infection [Unknown]
  - Pain [Unknown]
  - Infection [Unknown]
  - Vaginal disorder [Unknown]
  - Thrombocytopenia [Not Recovered/Not Resolved]
  - Polyarthritis [Unknown]
  - Adverse event [Unknown]
  - Dyspepsia [Unknown]
  - Constipation [Unknown]
  - Arthralgia [Unknown]
